FAERS Safety Report 22061535 (Version 2)
Quarter: 2023Q1

REPORT INFORMATION
  Report Type: Report from Study
  Country: US (occurrence: US)
  Receive Date: 20230304
  Receipt Date: 20230307
  Transmission Date: 20230417
  Serious: No
  Sender: FDA-Public Use
  Company Number: US-002147023-NVSC2023US047061

PATIENT
  Sex: Male

DRUGS (6)
  1. TRIAMCINOLONE [Suspect]
     Active Substance: TRIAMCINOLONE
     Indication: Psoriasis
     Dosage: UNK
     Route: 065
  2. COSENTYX [Suspect]
     Active Substance: SECUKINUMAB
     Indication: Psoriasis
     Dosage: 300 MG, OTHER (EVERY 4 WEEKS)
     Route: 058
  3. METHOTREXATE [Suspect]
     Active Substance: METHOTREXATE
     Indication: Psoriasis
     Dosage: UNK
     Route: 065
  4. CALCIPOTRIENE [Suspect]
     Active Substance: CALCIPOTRIENE
     Indication: Psoriasis
     Dosage: UNK
     Route: 065
  5. LISINOPRIL [Suspect]
     Active Substance: LISINOPRIL
     Indication: Psoriasis
     Dosage: 2.5 MG
     Route: 048
  6. TACLONEX [Suspect]
     Active Substance: BETAMETHASONE DIPROPIONATE\CALCIPOTRIENE\CALCIPOTRIENE HYDRATE
     Indication: Psoriasis
     Dosage: UNK
     Route: 065

REACTIONS (1)
  - Drug ineffective [Unknown]
